FAERS Safety Report 25397609 (Version 1)
Quarter: 2025Q2

REPORT INFORMATION
  Report Type: Spontaneous
  Country: US (occurrence: US)
  Receive Date: 20250604
  Receipt Date: 20250604
  Transmission Date: 20250716
  Serious: No
  Sender: GALPHARM INTERNATIONAL
  Company Number: US-PERRIGO-24US008899

PATIENT
  Sex: Female

DRUGS (2)
  1. MINOXIDIL [Suspect]
     Active Substance: MINOXIDIL
     Indication: Alopecia
     Route: 061
     Dates: start: 20240905, end: 20240917
  2. MINOXIDIL [Suspect]
     Active Substance: MINOXIDIL
     Route: 061
     Dates: start: 20240918, end: 20240919

REACTIONS (4)
  - Hair texture abnormal [Not Recovered/Not Resolved]
  - Underdose [Unknown]
  - Wrong technique in product usage process [Unknown]
  - Inappropriate schedule of product administration [Unknown]

NARRATIVE: CASE EVENT DATE: 20240901
